FAERS Safety Report 8560640 (Version 4)
Quarter: 2013Q4

REPORT INFORMATION
  Report Type: Spontaneous
  Country: ES (occurrence: ES)
  Receive Date: 20120508
  Receipt Date: 20131031
  Transmission Date: 20140711
  Serious: No
  Sender: FDA-Public Use
  Company Number: ES-009507513-2012SP022950

PATIENT
  Age: 60 Year
  Sex: Female

DRUGS (6)
  1. SYCREST [Suspect]
     Indication: BIPOLAR DISORDER
     Dosage: 5 MG, BID
     Route: 060
     Dates: start: 201203, end: 201204
  2. SYCREST [Suspect]
     Dosage: 5 MG, QD
     Route: 060
  3. RIVASTIGMINE [Concomitant]
     Dosage: UNK UNK, UNKNOWN
     Route: 065
  4. QUETIAPINE FUMARATE [Concomitant]
     Dosage: 400 MG, QD
     Route: 048
  5. PLENUR [Concomitant]
     Dosage: UNK UNK, UNKNOWN
     Route: 048
  6. DEPAKINE [Concomitant]
     Dosage: UNK UNK, UNKNOWN
     Route: 048

REACTIONS (1)
  - Rash [Recovered/Resolved]
